FAERS Safety Report 20664391 (Version 2)
Quarter: 2022Q2

REPORT INFORMATION
  Report Type: Spontaneous
  Country: FR (occurrence: None)
  Receive Date: 20220401
  Receipt Date: 20220411
  Transmission Date: 20220721
  Serious: Yes (Hospitalization)
  Sender: FDA-Public Use
  Company Number: 2022A121037

PATIENT
  Age: 63 Year
  Sex: Male
  Weight: 136.3 kg

DRUGS (11)
  1. ESOMEPRAZOLE [Suspect]
     Active Substance: ESOMEPRAZOLE
     Indication: Gastrooesophageal reflux disease
     Route: 048
     Dates: start: 2014, end: 20220205
  2. METFORMIN HYDROCHLORIDE [Suspect]
     Active Substance: METFORMIN HYDROCHLORIDE
     Indication: Product used for unknown indication
     Route: 048
     Dates: start: 2015, end: 20220207
  3. ATORVASTATIN [Concomitant]
     Active Substance: ATORVASTATIN
     Indication: Dyslipidaemia
     Route: 048
     Dates: start: 20211126, end: 20220205
  4. ENANTONE LP [Concomitant]
     Active Substance: LEUPROLIDE ACETATE
     Indication: Prostate cancer
     Route: 058
  5. FEBUXOSTAT [Concomitant]
     Active Substance: FEBUXOSTAT
     Indication: Hyperuricaemia
     Route: 048
     Dates: start: 2018, end: 20220205
  6. ESIDREX [Concomitant]
     Active Substance: HYDROCHLOROTHIAZIDE
     Indication: Product used for unknown indication
     Route: 048
     Dates: start: 2017
  7. FUROSEMIDE [Concomitant]
     Active Substance: FUROSEMIDE
     Indication: Product used for unknown indication
     Route: 048
     Dates: start: 2012
  8. EXFORGE [Concomitant]
     Active Substance: AMLODIPINE BESYLATE\VALSARTAN
     Indication: Product used for unknown indication
     Dosage: EXFORGE 10 MG/160 MG
     Route: 048
     Dates: start: 2017
  9. POTASSIUM CHLORIDE [Concomitant]
     Active Substance: POTASSIUM CHLORIDE
     Indication: Product used for unknown indication
     Route: 048
     Dates: start: 2020
  10. SILODOSIN [Concomitant]
     Active Substance: SILODOSIN
     Indication: Product used for unknown indication
     Route: 048
  11. BISOPROLOL [Concomitant]
     Active Substance: BISOPROLOL
     Indication: Product used for unknown indication
     Route: 048
     Dates: start: 2010

REACTIONS (3)
  - Linear IgA disease [Recovering/Resolving]
  - Acute kidney injury [Recovering/Resolving]
  - Anaemia vitamin B12 deficiency [Recovering/Resolving]

NARRATIVE: CASE EVENT DATE: 20211213
